FAERS Safety Report 7761428-5 (Version None)
Quarter: 2011Q3

REPORT INFORMATION
  Report Type: 
  Country: None (occurrence: None)
  Receive Date: 20110919
  Receipt Date: 20110919
  Transmission Date: 20111222
  Serious: No
  Sender: FDA-Public Use
  Company Number: None

PATIENT
  Age: 46 Year
  Sex: Female

DRUGS (1)
  1. GABAPENTIN [Suspect]
     Dates: start: 20100218, end: 20100304

REACTIONS (10)
  - INCOHERENT [None]
  - VOMITING [None]
  - LETHARGY [None]
  - ASPARTATE AMINOTRANSFERASE INCREASED [None]
  - NAUSEA [None]
  - CONFUSIONAL STATE [None]
  - ALANINE AMINOTRANSFERASE INCREASED [None]
  - LIVER INJURY [None]
  - BLOOD BILIRUBIN INCREASED [None]
  - SOMNOLENCE [None]
